FAERS Safety Report 4675268-7 (Version None)
Quarter: 2005Q2

REPORT INFORMATION
  Report Type: 
  Country: None (occurrence: None)
  Receive Date: 20050527
  Receipt Date: 20050519
  Transmission Date: 20051028
  Serious: Yes (Hospitalization)
  Sender: FDA-Public Use
  Company Number: US-JNJFOC-20050505406

PATIENT
  Sex: Female

DRUGS (28)
  1. INFLIXIMAB [Suspect]
     Indication: RHEUMATOID ARTHRITIS
     Route: 042
  2. AVAPRO [Concomitant]
  3. CALCIUM WITH VITAMIN D [Concomitant]
  4. CALCIUM WITH VITAMIN D [Concomitant]
  5. CALCIUM WITH VITAMIN D [Concomitant]
  6. DARVOCET [Concomitant]
  7. DARVOCET [Concomitant]
  8. FOLIC ACID [Concomitant]
  9. FOSAMAX [Concomitant]
  10. METHOTREXATE [Concomitant]
  11. MIACALCIN [Concomitant]
  12. PAXIL [Concomitant]
  13. MULTI-VITAMIN [Concomitant]
  14. MULTI-VITAMIN [Concomitant]
  15. MULTI-VITAMIN [Concomitant]
  16. MULTI-VITAMIN [Concomitant]
  17. MULTI-VITAMIN [Concomitant]
  18. MULTI-VITAMIN [Concomitant]
  19. MULTI-VITAMIN [Concomitant]
  20. MULTI-VITAMIN [Concomitant]
  21. PREDNISONE TAB [Concomitant]
  22. RANITIDINE [Concomitant]
  23. MOTRIN [Concomitant]
  24. ZOCOR [Concomitant]
  25. FEMHRT [Concomitant]
  26. FEMHRT [Concomitant]
  27. VIT C TAB [Concomitant]
  28. VITAMIN E [Concomitant]

REACTIONS (1)
  - CORONARY ARTERY DISEASE [None]
